FAERS Safety Report 4447420-7 (Version None)
Quarter: 2004Q3

REPORT INFORMATION
  Report Type: 
  Country: None (occurrence: None)
  Receive Date: 20040823
  Receipt Date: 20040517
  Transmission Date: 20050211
  Serious: No
  Sender: FDA-Public Use
  Company Number: PHEH2004US04288

PATIENT
  Age: 50 Year
  Sex: Female
  Weight: 73.5 kg

DRUGS (3)
  1. ZELNORM [Suspect]
     Indication: IRRITABLE BOWEL SYNDROME
     Dosage: ORAL
     Route: 048
     Dates: start: 20040301
  2. METOPROLOL [Concomitant]
  3. DEXAMETHASONE [Concomitant]

REACTIONS (1)
  - URINARY INCONTINENCE [None]
